FAERS Safety Report 8204559-8 (Version None)
Quarter: 2012Q2

REPORT INFORMATION
  Report Type: 
  Country: None (occurrence: None)
  Receive Date: 20120313
  Receipt Date: 20120308
  Transmission Date: 20120825
  Serious: Yes (Hospitalization, Other)
  Sender: FDA-Public Use
  Company Number: JP-PFIZER INC-2011217929

PATIENT
  Age: 73 Year
  Sex: Male

DRUGS (21)
  1. PREGABALIN [Suspect]
     Dosage: 150 MG, 1X/DAY
     Route: 048
     Dates: start: 20110827, end: 20110907
  2. SITAGLIPTIN [Concomitant]
     Dosage: 50 MG, 1X/DAY
     Route: 048
  3. VOGLIBOSE [Concomitant]
     Dosage: 0.3 MG, 3X/DAY
     Route: 048
  4. PERIACTIN [Concomitant]
     Dosage: 10 ML, 2X/DAY
     Route: 048
  5. ACTOS [Concomitant]
     Dosage: 15 MG, 1X/DAY
     Route: 048
  6. TANATRIL ^TANABE^ [Concomitant]
     Dosage: 2.5 MG, 1X/DAY
     Route: 048
  7. LASIX [Concomitant]
     Dosage: 40 MG, 1X/DAY
     Route: 048
  8. LANSOPRAZOLE [Concomitant]
     Dosage: 15 MG, 1X/DAY
     Route: 048
  9. MUCODYNE [Concomitant]
     Dosage: 500 MG, 3X/DAY
     Route: 048
  10. MUCOSOLVAN [Concomitant]
     Dosage: 45 MG, 1X/DAY
     Route: 048
  11. PROMAC /JPN/ [Suspect]
     Dosage: 75 MG, 2X/DAY
     Route: 048
  12. DEPAS [Suspect]
     Dosage: 1 MG, 1X/DAY
     Route: 048
  13. BROTIZOLAM [Concomitant]
     Dosage: 0.25 MG, 1X/DAY
     Route: 048
  14. ALLEGRA [Concomitant]
     Dosage: 60 MG, 2X/DAY
     Route: 048
  15. PREGABALIN [Suspect]
     Indication: DIABETIC NEUROPATHY
     Dosage: 75 MG, 2X/DAY
     Route: 048
     Dates: start: 20110818, end: 20110826
  16. GASMOTIN [Concomitant]
     Dosage: 5 MG, 3X/DAY
     Route: 048
  17. MAGMITT [Concomitant]
     Dosage: 0.5 G, 2X/DAY
     Route: 048
  18. BISOLVON [Concomitant]
     Dosage: 4 MG, 3X/DAY
     Route: 048
  19. ROHYPNOL [Concomitant]
     Dosage: 1 MG, 1X/DAY
     Route: 048
  20. LAC B [Concomitant]
     Dosage: 1 G, 3X/DAY
     Route: 048
  21. MOBIC [Concomitant]
     Dosage: 15 MG, 1X/DAY
     Route: 048

REACTIONS (2)
  - URINARY TRACT INFECTION [None]
  - URINARY RETENTION [None]
